FAERS Safety Report 7227051-6 (Version None)
Quarter: 2011Q1

REPORT INFORMATION
  Report Type: 
  Country: None (occurrence: None)
  Receive Date: 20110114
  Receipt Date: 20110112
  Transmission Date: 20110831
  Serious: Yes (Death, Other)
  Sender: FDA-Public Use
  Company Number: GB-ROCHE-602097

PATIENT
  Weight: 82.3 kg

DRUGS (8)
  1. TRAMADOL [Concomitant]
     Indication: PAIN
     Route: 048
     Dates: end: 20081223
  2. MOVICOL [Concomitant]
     Indication: CONSTIPATION
     Route: 048
     Dates: end: 20081228
  3. LANSOPRAZOLE [Concomitant]
     Indication: HIATUS HERNIA
     Route: 048
     Dates: end: 20081228
  4. TRASTUZUMAB [Suspect]
     Route: 065
  5. ANASTROZOLE [Concomitant]
     Indication: PAIN
     Route: 048
     Dates: start: 20080301, end: 20081228
  6. AMITRIPTYLINE [Concomitant]
     Indication: PAIN
     Route: 048
     Dates: end: 20081228
  7. BENDROFLUAZIDE [Concomitant]
     Indication: FLUID RETENTION
     Route: 048
     Dates: end: 20081228
  8. ETORICOXIB [Concomitant]
     Route: 048
     Dates: end: 20081228

REACTIONS (4)
  - METASTASES TO LUNG [None]
  - ANGIOEDEMA [None]
  - DEATH [None]
  - METASTASES TO CENTRAL NERVOUS SYSTEM [None]
